FAERS Safety Report 16025810 (Version 1)
Quarter: 2019Q1

REPORT INFORMATION
  Report Type: Spontaneous
  Country: IT (occurrence: IT)
  Receive Date: 20190302
  Receipt Date: 20190302
  Transmission Date: 20190418
  Serious: Yes (Hospitalization)
  Sender: FDA-Public Use
  Company Number: IT-ACCORD-110040

PATIENT
  Age: 80 Year
  Sex: Male

DRUGS (12)
  1. VIPIDIA [Concomitant]
     Active Substance: ALOGLIPTIN BENZOATE
  2. AVODART [Concomitant]
     Active Substance: DUTASTERIDE
  3. LASIX [Concomitant]
     Active Substance: FUROSEMIDE
  4. RAMIPRIL. [Suspect]
     Active Substance: RAMIPRIL
     Indication: HYPERTENSION
     Dates: start: 20180101, end: 20180501
  5. COUMADIN [Concomitant]
     Active Substance: WARFARIN SODIUM
  6. FULCRO [Concomitant]
     Active Substance: FENOFIBRATE
  7. PEPTAZOL [Concomitant]
     Active Substance: PANTOPRAZOLE SODIUM
  8. GOLTOR [Concomitant]
  9. PLAVIX [Concomitant]
     Active Substance: CLOPIDOGREL BISULFATE
  10. ZYLORIC [Concomitant]
     Active Substance: ALLOPURINOL
  11. KANRENOL [Suspect]
     Active Substance: CANRENOATE POTASSIUM
     Indication: PRODUCT USED FOR UNKNOWN INDICATION
     Dates: start: 20180101, end: 20180501
  12. CARDIOASPIRIN [Concomitant]
     Active Substance: ASPIRIN

REACTIONS (4)
  - Metabolic acidosis [Unknown]
  - Oliguria [Unknown]
  - Hyperkalaemia [Unknown]
  - Dyspnoea [Unknown]

NARRATIVE: CASE EVENT DATE: 20180501
